FAERS Safety Report 17977105 (Version 6)
Quarter: 2022Q4

REPORT INFORMATION
  Report Type: Report from Study
  Country: US (occurrence: US)
  Receive Date: 20200702
  Receipt Date: 20221114
  Transmission Date: 20230113
  Serious: No
  Sender: FDA-Public Use
  Company Number: None

PATIENT
  Sex: Female

DRUGS (2)
  1. TABRECTA [Suspect]
     Active Substance: CAPMATINIB
     Indication: Non-small cell lung cancer
     Dosage: 200 MG,
     Route: 065
  2. TABRECTA [Suspect]
     Active Substance: CAPMATINIB
     Dosage: 150 MG, BID
     Route: 048

REACTIONS (6)
  - Oedema [Unknown]
  - Fatigue [Unknown]
  - Peripheral swelling [Unknown]
  - Fluid retention [Unknown]
  - Product dose omission issue [Unknown]
  - Off label use [Unknown]
